FAERS Safety Report 4476752-1 (Version None)
Quarter: 2004Q4

REPORT INFORMATION
  Report Type: 
  Country: None (occurrence: None)
  Receive Date: 20041013
  Receipt Date: 20040929
  Transmission Date: 20050328
  Serious: Yes (Hospitalization, Other)
  Sender: FDA-Public Use
  Company Number: USA040977923

PATIENT
  Age: 73 Year
  Sex: Male

DRUGS (3)
  1. HUMALOG [Suspect]
     Dosage: 55 U/3 DAY
     Dates: start: 19960101
  2. INSULIN [Suspect]
     Dates: start: 19790101
  3. LANTUS [Concomitant]

REACTIONS (6)
  - BLOOD GLUCOSE INCREASED [None]
  - CORONARY ARTERY SURGERY [None]
  - HYPOXIA [None]
  - PHARMACEUTICAL PRODUCT COMPLAINT [None]
  - THERAPEUTIC RESPONSE DECREASED [None]
  - WEIGHT INCREASED [None]
